FAERS Safety Report 6568981-8 (Version None)
Quarter: 2010Q1

REPORT INFORMATION
  Report Type: 
  Country: None (occurrence: None)
  Receive Date: 20100203
  Receipt Date: 20100123
  Transmission Date: 20100710
  Serious: Yes (Other)
  Sender: FDA-Public Use
  Company Number: US-JNJCH-2010001491

PATIENT
  Age: 57 Year
  Sex: Female
  Weight: 66.7 kg

DRUGS (3)
  1. ROLAIDS [Suspect]
     Indication: ULCER
     Dosage: TEXT:TWO TABLETS EVERY FOUR HOURS
     Route: 048
     Dates: start: 20100108, end: 20100114
  2. BENICAR [Concomitant]
     Indication: HYPERTENSION
     Route: 065
     Dates: start: 19980101
  3. PREVACID [Concomitant]
     Indication: ULCER
     Route: 065

REACTIONS (5)
  - DIARRHOEA [None]
  - NAUSEA [None]
  - OFF LABEL USE [None]
  - PRODUCT ODOUR ABNORMAL [None]
  - VOMITING [None]
